FAERS Safety Report 18171338 (Version 2)
Quarter: 2025Q1

REPORT INFORMATION
  Report Type: Report from Study
  Country: US (occurrence: US)
  Receive Date: 20200819
  Receipt Date: 20250204
  Transmission Date: 20250408
  Serious: No
  Sender: TAKEDA
  Company Number: US-SHIRE-US202026525

PATIENT
  Age: 51 Year
  Sex: Male

DRUGS (2)
  1. HEMOFIL [Suspect]
     Active Substance: ANTIHEMOPHILIC FACTOR HUMAN
     Indication: Haemorrhage
  2. HEMOFIL [Suspect]
     Active Substance: ANTIHEMOPHILIC FACTOR HUMAN

REACTIONS (2)
  - Muscle strain [Unknown]
  - Creatinine renal clearance increased [Unknown]

NARRATIVE: CASE EVENT DATE: 20200730
